FAERS Safety Report 23776802 (Version 1)
Quarter: 2024Q2

REPORT INFORMATION
  Report Type: Spontaneous
  Country: US (occurrence: US)
  Receive Date: 20240424
  Receipt Date: 20240424
  Transmission Date: 20240715
  Serious: No
  Sender: FDA-Public Use
  Company Number: US-TEVA-VS-3181213

PATIENT
  Age: 71 Year
  Sex: Male

DRUGS (1)
  1. CLONIDINE HYDROCHLORIDE [Suspect]
     Active Substance: CLONIDINE HYDROCHLORIDE
     Dosage: CLONIDINE HYDROCHLORIDE 0.1 MG/24HR
     Route: 065

REACTIONS (1)
  - Wrong technique in product usage process [Unknown]
